FAERS Safety Report 18157576 (Version 1)
Quarter: 2020Q3

REPORT INFORMATION
  Report Type: Report from Study
  Country: None (occurrence: US)
  Receive Date: 20200817
  Receipt Date: 20200817
  Transmission Date: 20201103
  Serious: Yes (Hospitalization, Other)
  Sender: FDA-Public Use
  Company Number: US-ABBVIE-20K-163-3521399-00

PATIENT
  Sex: Male

DRUGS (1)
  1. VENCLEXTA [Suspect]
     Active Substance: VENETOCLAX
     Indication: MYELODYSPLASTIC SYNDROME
     Dosage: TAKE 1 TABLET BY MOUTH FOR 21 DAYS THEN TAKE 7 DAY OFF
     Route: 048

REACTIONS (7)
  - Diverticulitis [Unknown]
  - Pharyngeal ulceration [Unknown]
  - Haemorrhage [Unknown]
  - Off label use [Unknown]
  - Platelet count decreased [Unknown]
  - Fungal infection [Unknown]
  - Febrile neutropenia [Unknown]
